FAERS Safety Report 8582070-2 (Version None)
Quarter: 2012Q3

REPORT INFORMATION
  Report Type: 
  Country: None (occurrence: None)
  Receive Date: 20120809
  Receipt Date: 20120803
  Transmission Date: 20120928
  Serious: Yes (Other)
  Sender: FDA-Public Use
  Company Number: US-PFIZER INC-2012066965

PATIENT
  Age: 66 Year
  Sex: Female

DRUGS (16)
  1. DIPHENHYDRAMINE HYDROCHLORIDE [Concomitant]
     Indication: HYPERSENSITIVITY
     Dosage: UNK
  2. ESTRADIOL [Concomitant]
     Indication: HORMONE REPLACEMENT THERAPY
     Dosage: 0.5 MG, UNK
  3. MOMETASONE FUROATE [Concomitant]
  4. JUICE PLUS ^GARDEN BLEND^ [Concomitant]
  5. ESTRADIOL [Concomitant]
     Indication: BACK DISORDER
  6. ALUMINUM MAGNESIUM HYDROXIDE [Concomitant]
     Dosage: UNK
  7. EFFEXOR [Suspect]
     Indication: ANXIETY
     Dosage: UNK
     Dates: start: 20120101
  8. ESTRADIOL [Concomitant]
     Indication: SLEEP DISORDER
  9. HUMIRA [Suspect]
     Indication: ANKYLOSING SPONDYLITIS
     Dosage: 40 MG, 1 IN 15 D
     Dates: start: 20111013, end: 20120101
  10. LORATADINE [Concomitant]
     Indication: HYPERSENSITIVITY
     Dosage: UNK
  11. MEFENAMIC ACID [Concomitant]
     Indication: PAIN
     Dosage: UNK
  12. CALCIUM SUPPLEMENT [Concomitant]
     Indication: SUPPLEMENTATION THERAPY
     Dosage: UNK
  13. HUMIRA [Suspect]
     Dosage: 40 MG, 1 IN 3 WK
     Dates: start: 20120101
  14. ZOLPIDEM TARTRATE [Concomitant]
     Indication: SLEEP DISORDER
     Dosage: UNK
  15. ERGOCALCIFEROL [Concomitant]
     Dosage: UNK,
  16. SALMON OIL [Concomitant]
     Dosage: UNK

REACTIONS (23)
  - INJECTION SITE INDURATION [None]
  - RHINORRHOEA [None]
  - HEADACHE [None]
  - SKIN DISCOLOURATION [None]
  - INJECTION SITE WARMTH [None]
  - ABNORMAL SENSATION IN EYE [None]
  - LACRIMATION INCREASED [None]
  - FATIGUE [None]
  - THERAPY REGIMEN CHANGED [None]
  - DEPRESSION [None]
  - EXCORIATION [None]
  - INJECTION SITE SWELLING [None]
  - INJECTION SITE PAPULE [None]
  - SEASONAL ALLERGY [None]
  - INFECTION [None]
  - INJECTION SITE PAIN [None]
  - INJECTION SITE ERYTHEMA [None]
  - OPEN WOUND [None]
  - INJECTION SITE PRURITUS [None]
  - MOOD ALTERED [None]
  - EYE PAIN [None]
  - ANXIETY [None]
  - INFLAMMATION OF WOUND [None]
